FAERS Safety Report 9885091 (Version 1)
Quarter: 2014Q1

REPORT INFORMATION
  Report Type: Spontaneous
  Country: GB (occurrence: GB)
  Receive Date: 20140210
  Receipt Date: 20140210
  Transmission Date: 20141002
  Serious: Yes (Hospitalization)
  Sender: FDA-Public Use
  Company Number: GB-JNJFOC-20140119474

PATIENT
  Age: 25 Year
  Sex: Female
  Weight: 47 kg

DRUGS (5)
  1. STELARA [Suspect]
     Indication: PSORIATIC ARTHROPATHY
     Route: 058
     Dates: start: 20131231
  2. STELARA [Suspect]
     Indication: PSORIATIC ARTHROPATHY
     Route: 058
     Dates: start: 20131201
  3. STELARA [Suspect]
     Indication: PSORIASIS
     Route: 058
     Dates: start: 20131201
  4. STELARA [Suspect]
     Indication: PSORIASIS
     Route: 058
     Dates: start: 20131231
  5. ETANERCEPT [Suspect]
     Indication: PRODUCT USED FOR UNKNOWN INDICATION
     Route: 065

REACTIONS (2)
  - Hospitalisation [Unknown]
  - Drug ineffective [Unknown]
